FAERS Safety Report 6702481-7 (Version None)
Quarter: 2010Q2

REPORT INFORMATION
  Report Type: 
  Country: None (occurrence: None)
  Receive Date: 20100429
  Receipt Date: 20100421
  Transmission Date: 20101027
  Serious: Yes (Hospitalization)
  Sender: FDA-Public Use
  Company Number: B0650168A

PATIENT
  Sex: Female
  Weight: 65 kg

DRUGS (7)
  1. LAPATINIB [Suspect]
     Indication: BREAST CANCER
     Dosage: 1250MG PER DAY
     Route: 048
     Dates: start: 20100407
  2. PACLITAXEL [Suspect]
     Indication: BREAST CANCER
     Dosage: 301MG EVERY 3 WEEKS
     Route: 042
     Dates: start: 20100407
  3. MYOCET [Suspect]
     Indication: BREAST CANCER
     Dosage: 103MG EVERY 3 WEEKS
     Route: 042
     Dates: start: 20100407
  4. BERLINSULIN [Concomitant]
     Indication: DIABETES MELLITUS
     Route: 048
     Dates: start: 19850701
  5. CO APROVEL [Concomitant]
     Indication: HYPERTENSION
     Dosage: 300MG PER DAY
     Route: 048
     Dates: start: 19960101
  6. NIFE HEXAL [Concomitant]
     Indication: HYPERTENSION
     Dosage: 100MG PER DAY
     Route: 048
     Dates: start: 19960101
  7. BISOPROLOL FUMARATE [Concomitant]
     Indication: HYPERTENSION
     Dosage: 5MG PER DAY
     Route: 048
     Dates: start: 19960101

REACTIONS (7)
  - CARDIOVASCULAR DISORDER [None]
  - COLD SWEAT [None]
  - GASTROINTESTINAL HAEMORRHAGE [None]
  - HOT FLUSH [None]
  - HYPOGLYCAEMIA [None]
  - MELAENA [None]
  - SOMNOLENCE [None]
